FAERS Safety Report 9758089 (Version 2)
Quarter: 2014Q1

REPORT INFORMATION
  Report Type: Spontaneous
  Country: JP (occurrence: JP)
  Receive Date: 20131216
  Receipt Date: 20140206
  Transmission Date: 20141002
  Serious: Yes (Life-Threatening, Hospitalization)
  Sender: FDA-Public Use
  Company Number: JP-JNJFOC-20131205378

PATIENT
  Age: 82 Year
  Sex: Female
  Weight: 37 kg

DRUGS (10)
  1. XARELTO [Suspect]
     Indication: ATRIAL FIBRILLATION
     Route: 048
     Dates: start: 20131128, end: 20131201
  2. XARELTO [Suspect]
     Indication: CEREBROVASCULAR ACCIDENT PROPHYLAXIS
     Route: 048
     Dates: start: 20131128, end: 20131201
  3. BLOPRESS [Concomitant]
     Indication: HYPERTENSION
     Route: 048
  4. ADALAT CR [Concomitant]
     Indication: HYPERTENSION
     Route: 048
  5. FLUITRAN [Concomitant]
     Indication: CARDIAC FAILURE
     Route: 048
  6. SLOW-K [Concomitant]
     Indication: HYPOKALAEMIA
     Route: 048
  7. CINAL [Concomitant]
     Indication: CACHEXIA
     Route: 048
  8. BIOFERMIN [Concomitant]
     Indication: DIARRHOEA
     Route: 048
  9. GASMOTIN [Concomitant]
     Indication: GASTRITIS
     Route: 048
  10. MUCOSTA [Concomitant]
     Indication: GASTRITIS
     Route: 048

REACTIONS (2)
  - Brain herniation [Recovering/Resolving]
  - Cerebellar infarction [Recovered/Resolved with Sequelae]
